FAERS Safety Report 4501005-2 (Version None)
Quarter: 2004Q4

REPORT INFORMATION
  Report Type: 
  Country: None (occurrence: None)
  Receive Date: 20041115
  Receipt Date: 20041027
  Transmission Date: 20050328
  Serious: Yes (Other)
  Sender: FDA-Public Use
  Company Number: NL-GLAXOSMITHKLINE-B0349748A

PATIENT
  Age: 72 Year
  Sex: Female

DRUGS (7)
  1. ROSIGLITAZONE MALEATE [Suspect]
     Indication: DIABETES MELLITUS NON-INSULIN-DEPENDENT
     Dosage: 4MG PER DAY
     Route: 048
     Dates: start: 20040615, end: 20040824
  2. ACENOCOUMAROL [Suspect]
     Route: 065
  3. AMARYL [Suspect]
     Dosage: 3MG UNKNOWN
     Route: 065
  4. ZOCOR [Concomitant]
     Route: 065
  5. RYTMONORM [Concomitant]
     Route: 065
  6. ADALAT [Concomitant]
     Route: 065
  7. ENALAPRIL [Concomitant]
     Route: 065

REACTIONS (7)
  - CARDIAC FAILURE [None]
  - DRUG INTERACTION [None]
  - DYSPHAGIA [None]
  - DYSPNOEA [None]
  - FATIGUE [None]
  - INTERNATIONAL NORMALISED RATIO ABNORMAL [None]
  - OEDEMA [None]
